FAERS Safety Report 4454630-1 (Version None)
Quarter: 2004Q3

REPORT INFORMATION
  Report Type: 
  Country: None (occurrence: None)
  Receive Date: 20040826
  Receipt Date: 20040729
  Transmission Date: 20050211
  Serious: Yes (Life-Threatening)
  Sender: FDA-Public Use
  Company Number: 235422

PATIENT
  Age: 76 Year
  Sex: Male
  Weight: 86.2 kg

DRUGS (5)
  1. NOVOLIN N [Suspect]
     Indication: INSULIN-REQUIRING TYPE II DIABETES MELLITUS
     Dosage: 23 IU, QD, SUBCUTANEOUS
     Route: 058
  2. LASIX [Concomitant]
  3. POTASSIUM (POTASSIUM) [Concomitant]
  4. BAYER CHILDREN'S ASPIRIN (ACETYLSALICYLIC ACID) [Concomitant]
  5. NOVOLIN R [Concomitant]

REACTIONS (1)
  - HYPOGLYCAEMIC COMA [None]
